FAERS Safety Report 7519340-2 (Version None)
Quarter: 2011Q2

REPORT INFORMATION
  Report Type: 
  Country: None (occurrence: None)
  Receive Date: 20110602
  Receipt Date: 20110524
  Transmission Date: 20111010
  Serious: Yes (Hospitalization)
  Sender: FDA-Public Use
  Company Number: US-B.I. PHARMACEUTICALS,INC./RIDGEFIELD-2011-BP-11872BP

PATIENT
  Age: 71 Year
  Sex: Female
  Weight: 100 kg

DRUGS (12)
  1. PRADAXA [Suspect]
  2. KLOR-CON [Concomitant]
     Dosage: 20 MEQ
  3. LASIX [Concomitant]
     Dosage: 40 MG
  4. ACTOS [Concomitant]
     Dosage: 45 MG
  5. ALLOPURINOL [Concomitant]
     Dosage: 300 MG
  6. RITUXAN [Concomitant]
  7. GLYBURIDE [Concomitant]
     Dosage: 1000 MG
  8. METOPROLOL TARTRATE [Concomitant]
  9. LEVOTHROID [Concomitant]
     Dosage: 200 MCG
  10. ZETIA [Concomitant]
     Dosage: 10 MG
  11. CALCIUM WITH D 500 [Concomitant]
  12. SIMVASTATIN [Concomitant]

REACTIONS (2)
  - HAEMATOMA [None]
  - DISORIENTATION [None]
